FAERS Safety Report 6465198-2 (Version None)
Quarter: 2009Q4

REPORT INFORMATION
  Report Type: 
  Country: None (occurrence: None)
  Receive Date: 20091201
  Receipt Date: 20091119
  Transmission Date: 20100525
  Serious: Yes (Other)
  Sender: FDA-Public Use
  Company Number: PHHY2009BR51097

PATIENT
  Sex: Male

DRUGS (3)
  1. EXELON [Suspect]
     Route: 048
  2. EXELON [Suspect]
     Dosage: 10 CM2
     Route: 062
  3. EXELON [Suspect]
     Route: 062

REACTIONS (2)
  - DERMATITIS CONTACT [None]
  - VISUAL IMPAIRMENT [None]
